FAERS Safety Report 8406121-0 (Version None)
Quarter: 2012Q2

REPORT INFORMATION
  Report Type: 
  Country: None (occurrence: None)
  Receive Date: 20120529
  Receipt Date: 20080605
  Transmission Date: 20120825
  Serious: Yes (Death)
  Sender: FDA-Public Use
  Company Number: 001018

PATIENT
  Age: 69 Year
  Sex: Male
  Weight: 53 kg

DRUGS (13)
  1. LOXONIN (LOXOPROFEN SODIUM) [Suspect]
     Indication: BACK PAIN
     Dosage: 60 MG, TID, ORAL
     Route: 048
     Dates: start: 20080325, end: 20080503
  2. VENCOLL (CASANTRHRANOL, DOCUSATE SODIUM) [Concomitant]
  3. BASEN (VOGLIBOSE) [Concomitant]
  4. NOVOLIN N (INSULIN HUMAN (GENETICAL RECOMBINATION) [Concomitant]
  5. HEPARIN [Concomitant]
  6. LASIX [Concomitant]
  7. MUCOSTA (REBAMIPIDE) [Concomitant]
  8. LENDORM [Concomitant]
  9. RENAGEL [Concomitant]
  10. ERYTHROPOIETIN (ERYTHROPOIETIN) [Concomitant]
  11. SIGMART (NICORANDIL) [Concomitant]
  12. PLETAL [Suspect]
     Indication: PERIPHERAL ARTERIAL OCCLUSIVE DISEASE
     Dosage: 100 MG, BID, ORAL
     Route: 048
     Dates: start: 20080412, end: 20080503
  13. ASPIRIN [Suspect]
     Indication: MYOCARDIAL INFARCTION
     Dosage: 100 MG, QD, ORAL
     Route: 048
     Dates: start: 20050929, end: 20080503

REACTIONS (6)
  - PERIPHERAL ARTERIAL OCCLUSIVE DISEASE [None]
  - GASTROINTESTINAL HAEMORRHAGE [None]
  - NEPHROGENIC ANAEMIA [None]
  - HYPOTENSION [None]
  - SKIN ULCER [None]
  - RENAL FAILURE CHRONIC [None]
